FAERS Safety Report 17267235 (Version 1)
Quarter: 2020Q1

REPORT INFORMATION
  Report Type: Spontaneous
  Country: US (occurrence: US)
  Receive Date: 20200114
  Receipt Date: 20200114
  Transmission Date: 20200409
  Serious: No
  Sender: FDA-Public Use
  Company Number: US-MIKART, LLC-2078942

PATIENT
  Age: 53 Year
  Sex: Male

DRUGS (2)
  1. CHLORZOXAZONE. [Suspect]
     Active Substance: CHLORZOXAZONE
     Route: 048
  2. ^MULTIPLE MEDICATIONS^ (UNIDENTIFIED) [Concomitant]

REACTIONS (1)
  - Hepatic enzyme increased [Unknown]
